FAERS Safety Report 13948275 (Version 1)
Quarter: 2017Q3

REPORT INFORMATION
  Report Type: Spontaneous
  Country: US (occurrence: US)
  Receive Date: 20170908
  Receipt Date: 20170908
  Transmission Date: 20171128
  Serious: Yes (Hospitalization, Other)
  Sender: FDA-Public Use
  Company Number: US-TEVA-804594USA

PATIENT
  Age: 60 Year
  Sex: Female

DRUGS (1)
  1. PREDNISONE. [Suspect]
     Active Substance: PREDNISONE
     Indication: RHEUMATIC DISORDER
     Dosage: 60 MILLIGRAM DAILY;
     Route: 065

REACTIONS (2)
  - Fusarium infection [Recovering/Resolving]
  - Lung disorder [Recovering/Resolving]
